FAERS Safety Report 17840273 (Version 1)
Quarter: 2020Q2

REPORT INFORMATION
  Report Type: Spontaneous
  Country: US (occurrence: US)
  Receive Date: 20200529
  Receipt Date: 20200529
  Transmission Date: 20200714
  Serious: Yes (Hospitalization)
  Sender: FDA-Public Use
  Company Number: US-MYLANLABS-2020M1052707

PATIENT
  Age: 32 Year
  Sex: Female

DRUGS (11)
  1. INTRALIPID                         /01648802/ [Suspect]
     Active Substance: SOYBEAN OIL
     Dosage: POSTPARTUM, 0.25 ML/KG/MIN
     Route: 042
  2. METHADONE [Suspect]
     Active Substance: METHADONE HYDROCHLORIDE
     Indication: DRUG WITHDRAWAL MAINTENANCE THERAPY
     Dosage: 110 MILLIGRAM, QD
     Route: 065
  3. BUPIVACAINE. [Suspect]
     Active Substance: BUPIVACAINE
     Indication: LOCAL ANAESTHESIA
     Dosage: 2.5 MILLIGRAM (SPINAL ROUTE)
  4. FENTANYL. [Suspect]
     Active Substance: FENTANYL
     Dosage: 100 MICROGRAM
     Route: 008
  5. OXYTOCIN. [Suspect]
     Active Substance: OXYTOCIN
     Indication: LABOUR INDUCTION
     Route: 065
  6. BUPIVACAINE W/FENTANYL [Suspect]
     Active Substance: BUPIVACAINE\FENTANYL
     Indication: LABOUR PAIN
     Dosage: 10 MILLILITER(BOLUS OF 10ML)
     Route: 008
  7. INTRALIPID                         /01648802/ [Suspect]
     Active Substance: SOYBEAN OIL
     Indication: SYSTEMIC TOXICITY
     Dosage: 100 MILLILITER, QMINUTE
     Route: 040
  8. FENTANYL. [Suspect]
     Active Substance: FENTANYL
     Indication: LOCAL ANAESTHESIA
     Dosage: 2 MCG/ML
     Route: 008
  9. ALPRAZOLAM. [Suspect]
     Active Substance: ALPRAZOLAM
     Indication: ANXIETY
     Route: 065
  10. BUPIVACAINE. [Suspect]
     Active Substance: BUPIVACAINE
     Indication: LOCAL ANAESTHESIA
     Route: 008
  11. MISOPROSTOL. [Suspect]
     Active Substance: MISOPROSTOL
     Indication: LABOUR INDUCTION
     Route: 065

REACTIONS (9)
  - Overdose [Recovered/Resolved]
  - Somnolence [Recovered/Resolved]
  - Intentional product misuse [Recovered/Resolved]
  - Depressed level of consciousness [Recovered/Resolved]
  - Unresponsive to stimuli [Recovered/Resolved]
  - Loss of consciousness [Recovered/Resolved]
  - Maternal exposure during pregnancy [Recovered/Resolved]
  - Nystagmus [Recovered/Resolved]
  - Toxicity to various agents [Recovered/Resolved]
